FAERS Safety Report 24579782 (Version 2)
Quarter: 2025Q4

REPORT INFORMATION
  Report Type: Spontaneous
  Country: EU (occurrence: EU)
  Receive Date: 20241105
  Receipt Date: 20251127
  Transmission Date: 20260119
  Serious: Yes (Other)
  Sender: RANBAXY
  Company Number: EU-AEMPS-1572392

PATIENT
  Age: 77 Year
  Sex: Male

DRUGS (1)
  1. ALLOPURINOL [Suspect]
     Active Substance: ALLOPURINOL
     Indication: Hyperuricaemia
     Dosage: 200 MILLIGRAM, QD 0-2-0
     Route: 048
     Dates: start: 20120214, end: 20240621

REACTIONS (1)
  - Cutaneous vasculitis [Recovered/Resolved]

NARRATIVE: CASE EVENT DATE: 20230801
